FAERS Safety Report 9953762 (Version 1)
Quarter: 2014Q1

REPORT INFORMATION
  Report Type: Report from Study
  Country: US (occurrence: US)
  Receive Date: 20140304
  Receipt Date: 20140304
  Transmission Date: 20141002
  Serious: No
  Sender: FDA-Public Use
  Company Number: US-ABBVIE-13P-163-1081100-00

PATIENT
  Sex: Male

DRUGS (1)
  1. HUMIRA [Suspect]
     Indication: CROHN^S DISEASE
     Dates: start: 201209, end: 201210

REACTIONS (4)
  - Fatigue [Recovered/Resolved]
  - Cytomegalovirus infection [Recovered/Resolved]
  - Splenomegaly [Recovering/Resolving]
  - Nephrolithiasis [Recovered/Resolved]
